FAERS Safety Report 7232355-7 (Version None)
Quarter: 2011Q1

REPORT INFORMATION
  Report Type: 
  Country: None (occurrence: None)
  Receive Date: 20110119
  Receipt Date: 20110105
  Transmission Date: 20110831
  Serious: Yes (Death, Life-Threatening, Hospitalization, Other)
  Sender: FDA-Public Use
  Company Number: JP-CELGENEUS-087-21880-10102086

PATIENT
  Sex: Female

DRUGS (23)
  1. SOLDEM 1 [Concomitant]
     Dosage: 500-1000ML
     Route: 051
     Dates: start: 20100915, end: 20101105
  2. LASIX [Concomitant]
     Indication: MULTIPLE MYELOMA
     Route: 048
     Dates: start: 20100922, end: 20101012
  3. REVLIMID [Suspect]
     Route: 048
     Dates: start: 20100831, end: 20100905
  4. CALONAL [Concomitant]
     Indication: MULTIPLE MYELOMA
     Route: 048
     Dates: start: 20100705, end: 20100914
  5. FIRSTCIN [Concomitant]
     Indication: RENAL FAILURE CHRONIC
     Route: 051
     Dates: start: 20100807, end: 20100810
  6. ASPIRIN [Concomitant]
     Indication: PROPHYLAXIS
     Route: 048
     Dates: start: 20100803, end: 20100804
  7. OMEGACIN [Concomitant]
     Indication: RENAL FAILURE CHRONIC
     Route: 051
     Dates: start: 20100810, end: 20100823
  8. LASIX [Concomitant]
     Indication: CARDIAC FAILURE
     Route: 051
     Dates: start: 20101013, end: 20101020
  9. REVLIMID [Suspect]
     Route: 048
     Dates: start: 20100921, end: 20100930
  10. REVLIMID [Suspect]
     Route: 048
     Dates: start: 20101019, end: 20101029
  11. FLUCONARL [Concomitant]
     Indication: PROPHYLAXIS
     Route: 048
     Dates: start: 20100622, end: 20100806
  12. BONALON [Concomitant]
     Indication: PROPHYLAXIS
     Route: 048
     Dates: start: 20081006, end: 20100912
  13. FUNGUARD [Concomitant]
     Indication: PROPHYLAXIS
     Route: 051
     Dates: start: 20100807, end: 20100820
  14. SOLDEM 1 [Concomitant]
     Indication: MULTIPLE MYELOMA
     Route: 051
     Dates: start: 20100720, end: 20100807
  15. REVLIMID [Suspect]
     Indication: MULTIPLE MYELOMA
     Route: 048
     Dates: start: 20100803, end: 20100823
  16. SOLU-CORTEF [Concomitant]
     Indication: RENAL FAILURE CHRONIC
     Route: 051
     Dates: start: 20100811, end: 20100819
  17. CRAVIT [Concomitant]
     Indication: PROPHYLAXIS
     Route: 048
     Dates: start: 20100823, end: 20100903
  18. LANSOPRAZOLE [Concomitant]
     Indication: PROPHYLAXIS
     Route: 048
     Dates: start: 20100915, end: 20101104
  19. OMEPRAZOLE [Concomitant]
     Indication: PROPHYLAXIS
     Route: 048
     Dates: start: 20080426, end: 20100914
  20. BAKTAR [Concomitant]
     Indication: PROPHYLAXIS
     Route: 048
     Dates: start: 20080428, end: 20100913
  21. PENTAZOCINE LACTATE [Concomitant]
     Indication: MULTIPLE MYELOMA
     Route: 051
     Dates: start: 20100807, end: 20100810
  22. BFLUIID [Concomitant]
     Indication: MULTIPLE MYELOMA
     Dosage: 500-1000ML
     Route: 051
     Dates: start: 20100807, end: 20100823
  23. CRAVIT [Concomitant]
     Route: 048
     Dates: start: 20101009, end: 20101103

REACTIONS (9)
  - NEUTROPENIA [None]
  - INFECTION [None]
  - PNEUMONIA [None]
  - RENAL FAILURE [None]
  - CARDIAC FAILURE [None]
  - MULTIPLE MYELOMA [None]
  - THROMBOCYTOPENIA [None]
  - NAUSEA [None]
  - VOMITING [None]
